FAERS Safety Report 13168377 (Version 2)
Quarter: 2017Q1

REPORT INFORMATION
  Report Type: Spontaneous
  Country: ID (occurrence: ID)
  Receive Date: 20170131
  Receipt Date: 20170223
  Transmission Date: 20170428
  Serious: Yes (Other)
  Sender: FDA-Public Use
  Company Number: ID-OTSUKA-2017_001769

PATIENT
  Age: 73 Year
  Sex: Male

DRUGS (7)
  1. AMLODIPIN [Concomitant]
     Active Substance: AMLODIPINE BESYLATE
     Indication: BLOOD PRESSURE MANAGEMENT
     Dosage: UNK
     Route: 065
  2. NACL [Concomitant]
     Active Substance: SODIUM CHLORIDE
     Dosage: UNK, QD (250 CC/24 HOURS)
     Route: 042
     Dates: start: 20170103, end: 20170105
  3. PERDIPINE [Concomitant]
     Active Substance: NICARDIPINE HYDROCHLORIDE
     Indication: BLOOD PRESSURE MANAGEMENT
     Dosage: 10 MG, SINGLE (ONCE)
     Route: 042
     Dates: start: 20170103
  4. SAMSCA [Suspect]
     Active Substance: TOLVAPTAN
     Indication: HYPONATRAEMIA
     Dosage: 15 MG, QD
     Route: 048
     Dates: start: 20170105, end: 20170105
  5. NACL [Concomitant]
     Active Substance: SODIUM CHLORIDE
     Indication: HYPONATRAEMIA
     Dosage: UNK, QD
     Route: 042
     Dates: start: 20161227, end: 20161227
  6. NACL [Concomitant]
     Active Substance: SODIUM CHLORIDE
     Indication: ELECTROLYTE IMBALANCE
     Dosage: UNK
     Route: 042
     Dates: start: 20170103
  7. BLOPRESS [Concomitant]
     Active Substance: CANDESARTAN CILEXETIL
     Indication: BLOOD PRESSURE MANAGEMENT
     Dosage: 16 MG, QD
     Route: 048
     Dates: start: 20170103

REACTIONS (6)
  - Rapid correction of hyponatraemia [Recovered/Resolved]
  - Aphasia [Unknown]
  - Quadriplegia [Unknown]
  - Osmotic demyelination syndrome [Unknown]
  - Blood sodium increased [Recovered/Resolved]
  - Contraindicated product administered [Unknown]

NARRATIVE: CASE EVENT DATE: 20170105
